FAERS Safety Report 18468411 (Version 3)
Quarter: 2020Q4

REPORT INFORMATION
  Report Type: Spontaneous
  Country: IT (occurrence: IT)
  Receive Date: 20201105
  Receipt Date: 20201223
  Transmission Date: 20210114
  Serious: Yes (Hospitalization)
  Sender: FDA-Public Use
  Company Number: IT-PFIZER INC-2020428511

PATIENT
  Age: 48 Year
  Sex: Female
  Weight: 58 kg

DRUGS (8)
  1. PACLITAXEL. [Suspect]
     Active Substance: PACLITAXEL
     Indication: BREAST CANCER
     Dosage: LAST DOSE BEFORE SAE WAS 90 MG/MQ ON 09/OCT/2020NUMBER OF COURSES 6
     Route: 042
     Dates: start: 20200608, end: 20201009
  2. CARBOPLATIN. [Suspect]
     Active Substance: CARBOPLATIN
     Indication: BREAST CANCER
     Dosage: TOTAL DOSE WAS AUC 2LAST DOSE BEFORE SAE WAS ON 09/OCT/2020 NUMBER OF CYCLES 6
     Route: 042
     Dates: start: 20200608, end: 20201009
  3. VANCOMYCIN [Concomitant]
     Active Substance: VANCOMYCIN
     Dosage: 500 MG
     Route: 048
  4. PERTUZUMAB. [Suspect]
     Active Substance: PERTUZUMAB
     Indication: BREAST CANCER
     Dosage: LAST DOSE BEFORE SAE WAS 420 MG ON 01/OCT/2020NO. OF CYCLES 6
     Route: 042
     Dates: start: 20200608, end: 20201001
  5. ATEZOLIZUMAB. [Suspect]
     Active Substance: ATEZOLIZUMAB
     Indication: BREAST CANCER
     Dosage: NUMBER OF COURSES WERE 6LAST DOSE BEFORE SAE WAS 01/OCT/2020
     Route: 041
     Dates: start: 20200608, end: 20201009
  6. METRONIDAZOLE. [Concomitant]
     Active Substance: METRONIDAZOLE
     Dosage: 500 MG, (EVERY 3 DAYS)
     Route: 042
  7. TRASTUZUMAB. [Suspect]
     Active Substance: TRASTUZUMAB
     Indication: BREAST CANCER
     Dosage: NO. OF COURSES 6 LAST DOSE BEFORE SAE WAS 6 MG/KG ON 01/OCT/2020.
     Route: 041
     Dates: start: 20200608, end: 20201001
  8. METHYLPREDNISOLONE. [Concomitant]
     Active Substance: METHYLPREDNISOLONE
     Dosage: 60 MG, 2X/DAY (EVERY 0.5 DAY)
     Dates: start: 20201022

REACTIONS (1)
  - Mucosal inflammation [Recovered/Resolved]

NARRATIVE: CASE EVENT DATE: 20201013
